FAERS Safety Report 4628488-1 (Version None)
Quarter: 2005Q2

REPORT INFORMATION
  Report Type: 
  Country: None (occurrence: None)
  Receive Date: 20050404
  Receipt Date: 20050322
  Transmission Date: 20051028
  Serious: Yes (Other)
  Sender: FDA-Public Use
  Company Number: 2005049031

PATIENT
  Age: 82 Year
  Sex: Female

DRUGS (2)
  1. NEURONTIN [Suspect]
     Indication: FACIAL PAIN
  2. DONEPEZIL HCL [Concomitant]

REACTIONS (1)
  - GRAND MAL CONVULSION [None]
